FAERS Safety Report 5330330-0 (Version None)
Quarter: 2007Q2

REPORT INFORMATION
  Report Type: 
  Country: None (occurrence: None)
  Receive Date: 20070521
  Receipt Date: 20070509
  Transmission Date: 20071010
  Serious: Yes (Hospitalization)
  Sender: FDA-Public Use
  Company Number: US-PFIZER INC-2006027251

PATIENT
  Sex: Male
  Weight: 80.7 kg

DRUGS (14)
  1. CELEBREX [Suspect]
     Route: 048
     Dates: start: 20060110, end: 20060215
  2. SU-011,248 [Suspect]
     Indication: RENAL CELL CARCINOMA STAGE UNSPECIFIED
     Route: 048
  3. METHADONE HCL [Suspect]
     Route: 048
  4. PERCOCET [Suspect]
     Dosage: TEXT:5/ 325 MG, 2 TABLETS
     Route: 048
     Dates: start: 20060110, end: 20060215
  5. BACLOFEN [Suspect]
     Route: 048
     Dates: start: 20060110, end: 20060215
  6. MINOCYCLINE HCL [Concomitant]
     Route: 048
  7. LEXAPRO [Concomitant]
     Route: 048
  8. PROTONIX [Concomitant]
     Route: 048
  9. AMBIEN [Concomitant]
     Indication: INSOMNIA
     Route: 048
     Dates: start: 20060201, end: 20060207
  10. NEURONTIN [Concomitant]
     Route: 048
     Dates: start: 20060110, end: 20060215
  11. COMPAZINE [Concomitant]
     Route: 048
     Dates: start: 20060201, end: 20060215
  12. SENNA [Concomitant]
     Dosage: TEXT:2 TABLETS
     Route: 048
     Dates: start: 20060110, end: 20060215
  13. LACTULOSE [Concomitant]
     Indication: CONSTIPATION
     Dosage: TEXT:2 TABLESPOONS
     Route: 048
     Dates: start: 20060110, end: 20060215
  14. COLACE [Concomitant]
     Route: 048
     Dates: start: 20060110, end: 20060215

REACTIONS (3)
  - CONFUSIONAL STATE [None]
  - ENCEPHALOPATHY [None]
  - HYPERTENSION [None]
